FAERS Safety Report 6406419-1 (Version None)
Quarter: 2009Q4

REPORT INFORMATION
  Report Type: 
  Country: None (occurrence: None)
  Receive Date: 20091019
  Receipt Date: 20091007
  Transmission Date: 20100525
  Serious: Yes (Hospitalization, Other)
  Sender: FDA-Public Use
  Company Number: CA-NOVOPROD-292608

PATIENT
  Age: 55 Year
  Sex: Female

DRUGS (1)
  1. VAGIFEM [Suspect]
     Indication: VULVOVAGINAL DRYNESS
     Dosage: 1 TAB, QD (ONE TABLET FOR TWO WEEKS THEN TWICE WEEKLY)
     Dates: start: 20090915, end: 20090916

REACTIONS (5)
  - DIZZINESS [None]
  - HYPERSENSITIVITY [None]
  - NAUSEA [None]
  - VERTIGO [None]
  - VOMITING [None]
